FAERS Safety Report 6337139-X (Version None)
Quarter: 2009Q3

REPORT INFORMATION
  Report Type: 
  Country: None (occurrence: None)
  Receive Date: 20090831
  Receipt Date: 20090819
  Transmission Date: 20100115
  Serious: Yes (Other)
  Sender: FDA-Public Use
  Company Number: 2009-03054

PATIENT
  Age: 65 Year
  Sex: Male
  Weight: 92 kg

DRUGS (7)
  1. VELCADE [Suspect]
     Indication: MULTIPLE MYELOMA
     Dosage: 2.6 MG/M2, INTRAVENOUS
     Route: 042
     Dates: start: 20090630
  2. EPREX [Suspect]
     Indication: ANAEMIA
     Dosage: 40000 IU, SUBCUTANEOUS
     Route: 058
     Dates: start: 20090710
  3. MELPHALAN HYDROCHLORIDE [Concomitant]
  4. PREDNISONE TAB [Concomitant]
  5. TARDYFERONE (FERROUS SULFATE) [Concomitant]
  6. TORSEMIDE [Concomitant]
  7. ENALAPRIL MALEATE [Concomitant]

REACTIONS (1)
  - ACUTE FEBRILE NEUTROPHILIC DERMATOSIS [None]
